FAERS Safety Report 7990884-2 (Version None)
Quarter: 2011Q4

REPORT INFORMATION
  Report Type: 
  Country: None (occurrence: None)
  Receive Date: 20111219
  Receipt Date: 20111206
  Transmission Date: 20120403
  Serious: Yes (Hospitalization)
  Sender: FDA-Public Use
  Company Number: JP-ELI_LILLY_AND_COMPANY-JP201110005833

PATIENT
  Age: 70 Year
  Sex: Male

DRUGS (11)
  1. DORNER [Concomitant]
     Route: 048
  2. LOXONIN [Concomitant]
  3. LANSOPRAZOLE [Concomitant]
  4. ALLOPURINOL [Concomitant]
     Route: 048
  5. U-PASTA [Concomitant]
  6. MICARDIS [Concomitant]
     Route: 048
  7. PLETAL [Concomitant]
     Route: 048
  8. GEMZAR [Suspect]
     Indication: PANCREATIC CARCINOMA
     Dosage: 1000 MG/M2, UNK
     Route: 042
     Dates: start: 20101001, end: 20111005
  9. ALFAROL [Concomitant]
     Route: 048
  10. RINDERON                           /00008501/ [Concomitant]
  11. LASIX [Concomitant]
     Route: 048

REACTIONS (2)
  - PAIN IN EXTREMITY [None]
  - SKIN ULCER [None]
